FAERS Safety Report 19862743 (Version 2)
Quarter: 2021Q4

REPORT INFORMATION
  Report Type: Spontaneous
  Country: US (occurrence: US)
  Receive Date: 20210921
  Receipt Date: 20211019
  Transmission Date: 20220303
  Serious: Yes (Other)
  Sender: FDA-Public Use
  Company Number: US-BRISTOL-MYERS SQUIBB COMPANY-BMS-2021-094380

PATIENT
  Age: 79 Year
  Sex: Male
  Weight: 89.36 kg

DRUGS (20)
  1. ELIQUIS [Suspect]
     Active Substance: APIXABAN
     Indication: Cerebrovascular accident prophylaxis
     Dosage: 5 MILLIGRAM, BID
     Route: 048
  2. PLAVIX [Suspect]
     Active Substance: CLOPIDOGREL BISULFATE
     Indication: Stent placement
     Dosage: 75 MILLIGRAM, QD
     Route: 065
     Dates: end: 2021
  3. WARFARIN SODIUM [Suspect]
     Active Substance: WARFARIN SODIUM
     Indication: Product used for unknown indication
     Dosage: UNK
     Route: 065
  4. METOPROLOL SUCCINATE [Concomitant]
     Active Substance: METOPROLOL SUCCINATE
     Indication: Product used for unknown indication
     Dosage: UNK
     Route: 065
  5. DILTIAZEM [Concomitant]
     Active Substance: DILTIAZEM
     Indication: Product used for unknown indication
     Dosage: 240 MILLIGRAM, QD
     Route: 065
  6. ZETIA [Concomitant]
     Active Substance: EZETIMIBE
     Indication: Product used for unknown indication
     Dosage: 10 MILLIGRAM, QD
     Route: 065
  7. DIGOXIN [Concomitant]
     Active Substance: DIGOXIN
     Indication: Product used for unknown indication
     Dosage: 0.125 MILLIGRAM, QD
     Route: 065
  8. ROSUVASTATIN [Concomitant]
     Active Substance: ROSUVASTATIN
     Indication: Product used for unknown indication
     Dosage: 5 MILLIGRAM, QD
     Route: 065
  9. ALFA LIPOIC ACID [Concomitant]
     Indication: Product used for unknown indication
     Dosage: 2 TAB, BID
     Route: 065
  10. L CARNITINE [LEVOCARNITINE FUMARATE] [Concomitant]
     Indication: Cardiac disorder
     Dosage: 500 MILLIGRAM, QD
  11. EVENING PRIMROSE OIL [OENOTHERA BIENNIS] [Concomitant]
     Indication: Skin disorder
     Dosage: 1000 MILLIGRAM, QOD
  12. EVENING PRIMROSE OIL [OENOTHERA BIENNIS] [Concomitant]
     Indication: Metabolic disorder
  13. MULTI VITAMIN [ASCORBIC ACID;FOLIC ACID;NICOTINIC ACID;PYRIDOXINE HYDR [Concomitant]
     Indication: Product used for unknown indication
     Dosage: MULTI VITAMIN  50 PLUS
     Route: 065
  14. VITAMIN C [Concomitant]
     Active Substance: ASCORBIC ACID
     Indication: Product used for unknown indication
     Dosage: 500 MILLIGRAM, QD
     Route: 065
  15. GLUCOSAMINE CHONDROITIN [CHONDROITIN SULFATE SODIUM;GELATINE HYDROLYSA [Concomitant]
     Indication: Musculoskeletal pain
     Dosage: GLUCOSAMINE CHONDROITIN TRIPLE STRENGTH ONE A DAY FOR MUSCLE AND JOINT PAIN.  (ANKLES)-OLD FOOTBALL
     Route: 065
  16. GLUCOSAMINE CHONDROITIN [CHONDROITIN SULFATE SODIUM;GELATINE HYDROLYSA [Concomitant]
     Indication: Injury
  17. CHONDROITIN SULFATE (CHICKEN) [Concomitant]
     Active Substance: CHONDROITIN SULFATE (CHICKEN)
     Indication: Product used for unknown indication
     Dosage: UNK
     Route: 065
  18. MANGANESE GLUCONATE [Concomitant]
     Active Substance: MANGANESE GLUCONATE
     Indication: Product used for unknown indication
     Dosage: UNK
     Route: 065
  19. SODIUM BORATE DECAHYDRATE [Concomitant]
     Indication: Product used for unknown indication
     Dosage: UNK
     Route: 065
  20. GLUCOSAMINE + CHONDORITIN [Concomitant]
     Indication: Product used for unknown indication
     Dosage: UNK
     Route: 065

REACTIONS (7)
  - Pruritus [Unknown]
  - Wound haemorrhage [Unknown]
  - Rash macular [Unknown]
  - Dysstasia [Unknown]
  - Scratch [Unknown]
  - Feeling abnormal [Unknown]
  - Body height decreased [Unknown]
